FAERS Safety Report 5481772-4 (Version None)
Quarter: 2007Q4

REPORT INFORMATION
  Report Type: 
  Country: None (occurrence: None)
  Receive Date: 20071004
  Receipt Date: 20070924
  Transmission Date: 20080405
  Serious: Yes (Hospitalization)
  Sender: FDA-Public Use
  Company Number: DSU-2007-00559

PATIENT
  Age: 72 Year
  Sex: Male
  Weight: 125.1928 kg

DRUGS (12)
  1. BENICAR [Suspect]
     Indication: HYPERTENSION
     Dosage: 20 MG (20  MG, 1 IN 1 D), PER ORAL
     Route: 048
     Dates: start: 20070621, end: 20070801
  2. BENICAR [Suspect]
     Indication: HYPERTENSION
     Dosage: 20 MG (20  MG, 1 IN 1 D), PER ORAL
     Route: 048
     Dates: start: 20070816, end: 20070801
  3. LISINOPRIL (LISINOPRIL) (10 MILLIGRAM, TABLET) [Concomitant]
  4. FUROSEMIDE (FUROSEMIDE) (TABLET) (FUROSEMIDE) [Concomitant]
  5. COUMADIN (WARFARIN SODIUM) (TABLET) (WARFARIN SODIUM) [Concomitant]
  6. GEMFIBROZIL (GEMFIBROZIL) (600 MILLIGRAM, TABLET) (GEMFIBROZIL) [Concomitant]
  7. NIFEDIPINE ER (NIFEDIPINE) (60 MILLIGRAM, TABLET) (NIFEDIPINE) [Concomitant]
  8. SIMVASTATIN (SIMVASTATIN) (40 MILLIGRAM, TABLET) (SIMVASTATIN) [Concomitant]
  9. GLIPIZIDE (GLIPIZIDE) (5 MILLIGRAM, TABLET) (GLIPIZIDE) [Concomitant]
  10. PREDNISONE (PREDNISONE) (10 MILLIGRAM, TABLET) (REDNISONE) [Concomitant]
  11. ALLOPURINOL (ALLOPURINOL) (ALLOPURINOL) [Concomitant]
  12. SPIRONOLACTONE (SPIRONOLACTONE) (25 MILLIGRAM, TABLET) (SPIRONOLACTONE [Concomitant]

REACTIONS (5)
  - BLOOD CREATINE INCREASED [None]
  - BLOOD POTASSIUM INCREASED [None]
  - BLOOD UREA INCREASED [None]
  - HYPOTENSION [None]
  - LABORATORY TEST ABNORMAL [None]
